FAERS Safety Report 9197831 (Version 3)
Quarter: 2013Q2

REPORT INFORMATION
  Report Type: Report from Study
  Country: JP (occurrence: JP)
  Receive Date: 20130328
  Receipt Date: 20130430
  Transmission Date: 20140414
  Serious: Yes (Death, Hospitalization, Other)
  Sender: FDA-Public Use
  Company Number: JP-CELGENEUS-087-50794-12042269

PATIENT
  Age: 74 Year
  Sex: Male
  Weight: 56 kg

DRUGS (42)
  1. VIDAZA [Suspect]
     Indication: MYELODYSPLASTIC SYNDROME
     Dosage: 75 MILLIGRAM/SQ. METER
     Route: 058
     Dates: start: 20120208, end: 20120214
  2. VIDAZA [Suspect]
     Dosage: 37.5 MILLIGRAM/SQ. METER
     Route: 058
     Dates: start: 20120326, end: 20120401
  3. VIDAZA [Suspect]
     Dosage: 37.5 MILLIGRAM/SQ. METER
     Route: 058
     Dates: start: 20120423, end: 20120429
  4. VIDAZA [Suspect]
     Dosage: 37.5 MILLIGRAM/SQ. METER
     Route: 058
     Dates: start: 20120521, end: 20120527
  5. VIDAZA [Suspect]
     Dosage: 37.5 MILLIGRAM/SQ. METER
     Route: 058
     Dates: start: 20120618, end: 20120624
  6. VIDAZA [Suspect]
     Dosage: 37.5 MILLIGRAM/SQ. METER
     Route: 058
     Dates: start: 20120717, end: 20120723
  7. VIDAZA [Suspect]
     Dosage: 37.5 MILLIGRAM/SQ. METER
     Route: 058
     Dates: start: 20121001, end: 20121007
  8. VIDAZA [Suspect]
     Dosage: 37.5 MILLIGRAM/SQ. METER
     Route: 058
     Dates: start: 20121029, end: 20121031
  9. MAGMITT [Concomitant]
     Indication: PRODUCT USED FOR UNKNOWN INDICATION
     Route: 065
     Dates: start: 20120210
  10. POLYMYXIN B SULFATE [Concomitant]
     Indication: PRODUCT USED FOR UNKNOWN INDICATION
     Route: 065
     Dates: start: 20120131, end: 20121218
  11. ITRACONAZOLE [Concomitant]
     Indication: PRODUCT USED FOR UNKNOWN INDICATION
     Route: 065
     Dates: start: 20120131, end: 20121218
  12. ALLOPURINOL [Concomitant]
     Indication: PRODUCT USED FOR UNKNOWN INDICATION
     Route: 065
     Dates: start: 20120131, end: 20121218
  13. MUCODYNE [Concomitant]
     Indication: PRODUCT USED FOR UNKNOWN INDICATION
     Route: 065
     Dates: end: 20121218
  14. SPIROPENT [Concomitant]
     Indication: PRODUCT USED FOR UNKNOWN INDICATION
     Route: 065
     Dates: end: 20121218
  15. THEODUR [Concomitant]
     Indication: PRODUCT USED FOR UNKNOWN INDICATION
     Route: 065
     Dates: end: 20121218
  16. PURSENNID [Concomitant]
     Indication: PRODUCT USED FOR UNKNOWN INDICATION
     Route: 065
     Dates: start: 20120210
  17. CLARITHROMYCIN [Concomitant]
     Indication: PRODUCT USED FOR UNKNOWN INDICATION
     Route: 065
     Dates: start: 20120210
  18. SOLACET D [Concomitant]
     Indication: PRODUCT USED FOR UNKNOWN INDICATION
     Route: 065
     Dates: start: 20120201, end: 20120214
  19. GRANISETRON HYDROCHLORIDE [Concomitant]
     Indication: PRODUCT USED FOR UNKNOWN INDICATION
     Route: 065
     Dates: start: 20120208, end: 20120214
  20. GRANISETRON HYDROCHLORIDE [Concomitant]
     Route: 065
     Dates: start: 20120326, end: 20120401
  21. GRANISETRON HYDROCHLORIDE [Concomitant]
     Route: 065
     Dates: start: 20120423, end: 20120429
  22. GRANISETRON HYDROCHLORIDE [Concomitant]
     Route: 065
     Dates: start: 20120521, end: 20120527
  23. GRANISETRON HYDROCHLORIDE [Concomitant]
     Route: 065
     Dates: start: 20120618, end: 20120624
  24. GRANISETRON HYDROCHLORIDE [Concomitant]
     Route: 065
     Dates: start: 20120717, end: 20120723
  25. GRANISETRON HYDROCHLORIDE [Concomitant]
     Route: 065
     Dates: start: 20121001, end: 20121007
  26. GRANISETRON HYDROCHLORIDE [Concomitant]
     Route: 065
     Dates: start: 20121029, end: 20121031
  27. SOL-MELCORT [Concomitant]
     Indication: PRODUCT USED FOR UNKNOWN INDICATION
     Route: 065
     Dates: start: 20120217, end: 20120221
  28. SOL-MELCORT [Concomitant]
     Route: 065
     Dates: start: 20121101, end: 20121101
  29. SOL-MELCORT [Concomitant]
     Route: 065
     Dates: start: 20121218, end: 20121218
  30. LASIX [Concomitant]
     Indication: PRODUCT USED FOR UNKNOWN INDICATION
     Route: 065
     Dates: start: 20120224, end: 20120226
  31. GRAN [Concomitant]
     Indication: PRODUCT USED FOR UNKNOWN INDICATION
     Route: 065
     Dates: start: 20120307, end: 20120313
  32. GRAN [Concomitant]
     Route: 065
     Dates: start: 20121212, end: 20121218
  33. PREDONINE [Concomitant]
     Indication: PRODUCT USED FOR UNKNOWN INDICATION
     Route: 065
     Dates: start: 20120327, end: 20120402
  34. PREDONINE [Concomitant]
     Route: 065
     Dates: start: 20120423, end: 20120429
  35. PREDONINE [Concomitant]
     Route: 065
     Dates: start: 20120521, end: 20120527
  36. PREDONINE [Concomitant]
     Route: 065
     Dates: start: 20120618, end: 20120624
  37. PREDONINE [Concomitant]
     Route: 065
     Dates: start: 20120717, end: 20120723
  38. PREDONINE [Concomitant]
     Route: 065
     Dates: start: 20121029, end: 20121031
  39. CEFTRIAXONE NA [Concomitant]
     Indication: PRODUCT USED FOR UNKNOWN INDICATION
     Route: 065
     Dates: start: 20121104, end: 20121104
  40. CEFTRIAXONE NA [Concomitant]
     Route: 065
     Dates: start: 20121106, end: 20121106
  41. MEROPENEM HYDRATE [Concomitant]
     Indication: PRODUCT USED FOR UNKNOWN INDICATION
     Route: 065
     Dates: start: 20121112, end: 20121125
  42. MEROPENEM HYDRATE [Concomitant]
     Route: 065
     Dates: start: 20121212, end: 20121218

REACTIONS (9)
  - Pneumonia [Fatal]
  - Anaemia [Recovered/Resolved]
  - Bronchopneumonia [Recovered/Resolved]
  - White blood cell count decreased [Recovered/Resolved]
  - Platelet count decreased [Unknown]
  - Febrile neutropenia [Recovered/Resolved]
  - Pneumonia [Recovered/Resolved]
  - Asthma [Unknown]
  - Cardiac failure congestive [Unknown]
